FAERS Safety Report 9948947 (Version 1)
Quarter: 2014Q1

REPORT INFORMATION
  Report Type: Spontaneous
  Country: FR (occurrence: FR)
  Receive Date: 20140303
  Receipt Date: 20140303
  Transmission Date: 20141002
  Serious: Yes (Life-Threatening, Hospitalization)
  Sender: FDA-Public Use
  Company Number: FR-MYLANLABS-2014S1003586

PATIENT
  Age: 63 Year
  Sex: Male

DRUGS (3)
  1. METFORMINE [Suspect]
     Indication: HYPERGLYCAEMIA
     Route: 048
     Dates: start: 20131116, end: 20131121
  2. AMAREL [Concomitant]
     Indication: HYPERGLYCAEMIA
  3. ONGLYZA [Concomitant]
     Indication: HYPERGLYCAEMIA

REACTIONS (4)
  - Drug dispensing error [Unknown]
  - Incorrect dose administered [Unknown]
  - Hypoglycaemic coma [Unknown]
  - Pyrexia [Unknown]
